FAERS Safety Report 8973014 (Version 1)
Quarter: 2012Q4

REPORT INFORMATION
  Report Type: 
  Country: US (occurrence: US)
  Receive Date: 20121218
  Receipt Date: 20121218
  Transmission Date: 20130627
  Serious: No
  Sender: FDA-Public Use
  Company Number: US-BRISTOL-MYERS SQUIBB COMPANY-16967549

PATIENT
  Age: 26 Year
  Sex: Female

DRUGS (7)
  1. ABILIFY [Suspect]
     Indication: MENTAL DISORDER
     Route: 048
  2. TOPAMAX [Suspect]
     Dosage: at bedtime
     Route: 048
  3. PROPANOLOL HYDROCHLORIDE [Concomitant]
     Dosage: at bedtime
  4. COGENTIN [Concomitant]
  5. HALDOL [Concomitant]
  6. CYMBALTA [Concomitant]
     Dosage: also 60mg
  7. KLONOPIN [Concomitant]

REACTIONS (1)
  - Visual impairment [Not Recovered/Not Resolved]
